FAERS Safety Report 6360057-8 (Version None)
Quarter: 2009Q3

REPORT INFORMATION
  Report Type: 
  Country: None (occurrence: None)
  Receive Date: 20090917
  Receipt Date: 20090909
  Transmission Date: 20100115
  Serious: Yes (Other)
  Sender: FDA-Public Use
  Company Number: PHHY2009BR03745

PATIENT
  Sex: Male
  Weight: 85 kg

DRUGS (2)
  1. TEGRETOL [Suspect]
     Indication: BIPOLAR I DISORDER
     Dosage: 200 MG, QD
     Route: 048
     Dates: start: 20090401
  2. DIAZEPAM [Concomitant]
     Indication: ANXIETY
     Dosage: 10 MG, BID
     Route: 048
     Dates: start: 20090126

REACTIONS (7)
  - ANXIETY [None]
  - CONFUSIONAL STATE [None]
  - FATIGUE [None]
  - FEELING OF DESPAIR [None]
  - NEGATIVE THOUGHTS [None]
  - PRURITUS [None]
  - THINKING ABNORMAL [None]
